FAERS Safety Report 8781552 (Version 2)
Quarter: 2012Q4

REPORT INFORMATION
  Report Type: 
  Country: US (occurrence: US)
  Receive Date: 20120913
  Receipt Date: 20121116
  Transmission Date: 20130627
  Serious: Yes (Hospitalization, Disabling, Other)
  Sender: FDA-Public Use
  Company Number: US-009507513-1204USA03174

PATIENT

DRUGS (5)
  1. FOSAMAX [Suspect]
     Indication: OSTEOPOROSIS
     Dosage: 70 mg, qd
     Route: 048
     Dates: start: 2000, end: 201005
  2. FOSAMAX [Suspect]
     Dosage: 70 mg, qw
     Route: 048
     Dates: start: 2000, end: 201005
  3. DIFLUNISAL [Concomitant]
     Indication: RHEUMATOID ARTHRITIS
     Dosage: UNK UNK, tid
     Route: 048
     Dates: start: 2000
  4. HYDROXYCHLOROQUINE SULFATE [Concomitant]
     Indication: RHEUMATOID ARTHRITIS
     Dosage: UNK, qd
     Route: 048
     Dates: start: 2000
  5. FOSAMAX [Suspect]
     Indication: OSTEOPOROSIS
     Dosage: 70 mg, qw
     Route: 048
     Dates: start: 2006

REACTIONS (68)
  - Femur fracture [Unknown]
  - Overdose [Recovered/Resolved]
  - Knee operation [Unknown]
  - Hypoparathyroidism [Unknown]
  - Herpes zoster [Unknown]
  - Complex regional pain syndrome [Unknown]
  - Hysterectomy [Unknown]
  - Foot operation [Unknown]
  - Breast lump removal [Unknown]
  - Arthralgia [Unknown]
  - Coronary arterial stent insertion [Unknown]
  - Bursitis [Unknown]
  - Eye irritation [Unknown]
  - Drug hypersensitivity [Unknown]
  - Eye infection bacterial [Unknown]
  - Dry eye [Unknown]
  - Eye irritation [Unknown]
  - Drug hypersensitivity [Unknown]
  - Drug hypersensitivity [Unknown]
  - Sjogren^s syndrome [Unknown]
  - Scoliosis [Unknown]
  - Intervertebral disc degeneration [Unknown]
  - Osteoarthritis [Unknown]
  - Renal failure chronic [Unknown]
  - Intraocular lens implant [Unknown]
  - Cataract [Unknown]
  - Hip arthroplasty [Unknown]
  - Hypercholesterolaemia [Unknown]
  - Labile hypertension [Unknown]
  - Hyperglycaemia [Unknown]
  - Obesity [Unknown]
  - Coronary artery disease [Unknown]
  - Open reduction of fracture [Unknown]
  - Fibromyalgia [Unknown]
  - Cough [Unknown]
  - Neuropathy peripheral [Unknown]
  - Respiratory disorder [Unknown]
  - Medical device removal [Unknown]
  - Lumbar radiculopathy [Unknown]
  - Spondylolisthesis [Unknown]
  - Radiculitis lumbosacral [Unknown]
  - Insomnia [Unknown]
  - Gastrooesophageal reflux disease [Unknown]
  - Myocardial ischaemia [Unknown]
  - Angina pectoris [Unknown]
  - Chest pain [Unknown]
  - Humerus fracture [Unknown]
  - Nausea [Recovered/Resolved]
  - Vomiting [Recovered/Resolved]
  - Drug hypersensitivity [Unknown]
  - Craniocerebral injury [Unknown]
  - Contusion [Recovered/Resolved]
  - Anaemia postoperative [Recovered/Resolved]
  - Transfusion [Recovered/Resolved]
  - Arthrodesis [Unknown]
  - Hypothyroidism [Unknown]
  - Temporomandibular joint syndrome [Unknown]
  - Ingrowing nail [Unknown]
  - Chronic sinusitis [Unknown]
  - Chest pain [Unknown]
  - Rheumatoid arthritis [Unknown]
  - Pain in jaw [Unknown]
  - Post herpetic neuralgia [Recovering/Resolving]
  - Road traffic accident [Unknown]
  - Myalgia [Unknown]
  - Chemotherapy [Unknown]
  - Myositis [Unknown]
  - Joint swelling [Unknown]
